FAERS Safety Report 23553916 (Version 1)
Quarter: 2024Q1

REPORT INFORMATION
  Report Type: Spontaneous
  Country: CA (occurrence: CA)
  Receive Date: 20240222
  Receipt Date: 20240222
  Transmission Date: 20240410
  Serious: Yes (Hospitalization, Other)
  Sender: FDA-Public Use
  Company Number: CA-MTPC-MTDA2024-0003103

PATIENT
  Age: 77 Year
  Sex: Male

DRUGS (1)
  1. RADICAVA [Suspect]
     Active Substance: EDARAVONE
     Indication: Amyotrophic lateral sclerosis
     Dosage: 60 MILLIGRAM, CYCLICAL
     Route: 042

REACTIONS (3)
  - Pneumonia aspiration [Recovering/Resolving]
  - Tachycardia [Recovering/Resolving]
  - Pyrexia [Recovering/Resolving]
